FAERS Safety Report 8249240-4 (Version None)
Quarter: 2012Q1

REPORT INFORMATION
  Report Type: 
  Country: None (occurrence: None)
  Receive Date: 20120327
  Receipt Date: 20120320
  Transmission Date: 20120608
  Serious: Yes (Other)
  Sender: FDA-Public Use
  Company Number: 2012SP012019

PATIENT
  Sex: Female

DRUGS (3)
  1. RIBAVIRIN [Suspect]
     Indication: HEPATITIS C
     Dates: start: 20120102
  2. VICTRELIS [Suspect]
     Indication: HEPATITIS C
     Dates: start: 20120205
  3. PEGASYS [Suspect]
     Indication: HEPATITIS C
     Dates: start: 20120102

REACTIONS (21)
  - BLOOD URIC ACID INCREASED [None]
  - ORAL PAIN [None]
  - TONGUE DISORDER [None]
  - WHITE BLOOD CELL COUNT DECREASED [None]
  - DYSGEUSIA [None]
  - ANAEMIA [None]
  - ORAL DISCOMFORT [None]
  - DIARRHOEA [None]
  - BLOOD BILIRUBIN INCREASED [None]
  - LIP PAIN [None]
  - GLOSSODYNIA [None]
  - HYPOAESTHESIA ORAL [None]
  - PYREXIA [None]
  - RASH [None]
  - STOMATITIS [None]
  - LACERATION [None]
  - PLATELET COUNT DECREASED [None]
  - PROCTALGIA [None]
  - NAUSEA [None]
  - SWOLLEN TONGUE [None]
  - LIP DISORDER [None]
